FAERS Safety Report 6435346-9 (Version None)
Quarter: 2009Q4

REPORT INFORMATION
  Report Type: 
  Country: None (occurrence: None)
  Receive Date: 20091106
  Receipt Date: 20091029
  Transmission Date: 20100525
  Serious: Yes (Hospitalization)
  Sender: FDA-Public Use
  Company Number: 8053937

PATIENT
  Age: 34 Year
  Sex: Female

DRUGS (5)
  1. CIMZIA [Suspect]
     Indication: CROHN'S DISEASE
     Dosage: 400 MG 1/2W SC
     Route: 058
     Dates: start: 20090825
  2. ENTOCORT EC [Concomitant]
  3. FOLIC ACID [Concomitant]
  4. XANAX [Concomitant]
  5. LOMOTIL [Concomitant]

REACTIONS (3)
  - MUSCULOSKELETAL PAIN [None]
  - PERIRECTAL ABSCESS [None]
  - PURULENCE [None]
